FAERS Safety Report 5598443-6 (Version None)
Quarter: 2007Q4

REPORT INFORMATION
  Report Type: 
  Country: None (occurrence: None)
  Receive Date: 20071226
  Receipt Date: 20070905
  Transmission Date: 20080405
  Serious: No
  Sender: FDA-Public Use
  Company Number: 2007PV033402

PATIENT
  Age: 72 Year
  Sex: Male

DRUGS (4)
  1. SYMLIN [Suspect]
     Indication: TYPE 1 DIABETES MELLITUS
     Dosage: 15 MCG, QAM, SC
     Route: 058
     Dates: start: 20070904
  2. HUMALOG [Concomitant]
  3. LANTUS [Concomitant]
  4. MILK OF MAGNESIA [Concomitant]

REACTIONS (3)
  - BLOOD GLUCOSE DECREASED [None]
  - LETHARGY [None]
  - NAUSEA [None]
